FAERS Safety Report 14014745 (Version 1)
Quarter: 2017Q3

REPORT INFORMATION
  Report Type: Spontaneous
  Country: US (occurrence: US)
  Receive Date: 20170927
  Receipt Date: 20170927
  Transmission Date: 20171128
  Serious: No
  Sender: FDA-Public Use
  Company Number: US-PFIZER INC-2017415841

PATIENT
  Age: 62 Year
  Sex: Female

DRUGS (1)
  1. SUTENT [Suspect]
     Active Substance: SUNITINIB MALATE
     Indication: RENAL CANCER
     Dosage: 50 MG, CYCLIC, (1X/DAY, 2 WEEKS ON, THEN 1WEEK OFF)
     Route: 048
     Dates: start: 20170110

REACTIONS (1)
  - Neoplasm progression [Unknown]

NARRATIVE: CASE EVENT DATE: 2017
